FAERS Safety Report 4887355-9 (Version None)
Quarter: 2006Q1

REPORT INFORMATION
  Report Type: 
  Country: None (occurrence: None)
  Receive Date: 20060122
  Receipt Date: 20060112
  Transmission Date: 20060701
  Serious: Yes (Hospitalization, Other)
  Sender: FDA-Public Use
  Company Number: US-ABBOTT-06P-163-0322820-00

PATIENT
  Age: 18 Month
  Sex: Female

DRUGS (4)
  1. CLARITHROMYCIN [Suspect]
     Indication: TUBERCULOSIS
     Dosage: NOT REPORTED
  2. PARACETAMOL [Suspect]
     Indication: DRUG USE FOR UNKNOWN INDICATION
     Dosage: 500 MILLIGRAM TABLETS
     Route: 048
  3. ISONIAZID [Suspect]
     Indication: TUBERCULOSIS
     Dosage: NOT REPORTED
  4. RIFAMPICIN [Suspect]
     Indication: DRUG USE FOR UNKNOWN INDICATION
     Dosage: NOT REPORTED

REACTIONS (5)
  - DRUG TOXICITY [None]
  - HEPATOTOXICITY [None]
  - METABOLIC ACIDOSIS [None]
  - SOMNOLENCE [None]
  - TRANSAMINASES INCREASED [None]
